FAERS Safety Report 9401012 (Version 2)
Quarter: 2013Q3

REPORT INFORMATION
  Report Type: Report from Study
  Country: AU (occurrence: AU)
  Receive Date: 20130715
  Receipt Date: 20130719
  Transmission Date: 20140515
  Serious: Yes (Hospitalization)
  Sender: FDA-Public Use
  Company Number: AU-GLAXOSMITHKLINE-B0905984A

PATIENT
  Age: 75 Year
  Sex: Male
  Weight: 129 kg

DRUGS (2)
  1. AZACITIDINE [Suspect]
     Indication: MYELODYSPLASTIC SYNDROME
     Dosage: 185MG CYCLIC
     Dates: start: 20130506, end: 20130612
  2. ELTROMBOPAG [Suspect]
     Indication: MYELODYSPLASTIC SYNDROME
     Dates: start: 20130506

REACTIONS (1)
  - Febrile neutropenia [Recovered/Resolved]
